FAERS Safety Report 11271458 (Version 1)
Quarter: 2015Q3

REPORT INFORMATION
  Report Type: Spontaneous
  Country: FR (occurrence: FR)
  Receive Date: 20150714
  Receipt Date: 20150714
  Transmission Date: 20151125
  Serious: Yes (Death, Other)
  Sender: FDA-Public Use
  Company Number: FR-BIOMARINAP-FR-2015-106841

PATIENT
  Age: 24 Month
  Sex: Female

DRUGS (1)
  1. ALDURAZYME [Suspect]
     Active Substance: LARONIDASE
     Indication: MUCOPOLYSACCHARIDOSIS I
     Dosage: UNK
     Route: 042
     Dates: start: 20110120, end: 20110331

REACTIONS (6)
  - Condition aggravated [Unknown]
  - Respiratory distress [Fatal]
  - Oxygen supplementation [Unknown]
  - Graft versus host disease [Unknown]
  - Respiratory disorder [Unknown]
  - Idiopathic pneumonia syndrome [Unknown]

NARRATIVE: CASE EVENT DATE: 20111130
